FAERS Safety Report 5721567-7 (Version None)
Quarter: 2008Q2

REPORT INFORMATION
  Report Type: 
  Country: None (occurrence: None)
  Receive Date: 20080429
  Receipt Date: 20070328
  Transmission Date: 20081010
  Serious: No
  Sender: FDA-Public Use
  Company Number: US-ASTRAZENECA-2007UW06318

PATIENT
  Age: 34 Year
  Sex: Male
  Weight: 88.5 kg

DRUGS (5)
  1. NEXIUM [Suspect]
     Indication: GASTROOESOPHAGEAL REFLUX DISEASE
     Route: 048
     Dates: start: 20060101
  2. VALIUM [Concomitant]
     Dates: start: 20070101
  3. CELEXA [Concomitant]
  4. CLARITIN [Concomitant]
     Indication: SEASONAL ALLERGY
  5. FLUNISOLIDE [Concomitant]

REACTIONS (1)
  - DRUG SCREEN POSITIVE [None]
